FAERS Safety Report 19560940 (Version 1)
Quarter: 2021Q3

REPORT INFORMATION
  Report Type: Spontaneous
  Country: NL (occurrence: NL)
  Receive Date: 20210714
  Receipt Date: 20210714
  Transmission Date: 20211014
  Serious: Yes (Other)
  Sender: FDA-Public Use
  Company Number: NL-MYLANLABS-2021M1040104

PATIENT
  Age: 59 Year
  Sex: Female
  Weight: 100 kg

DRUGS (2)
  1. ENALAPRIL                          /00574902/ [Concomitant]
     Active Substance: ENALAPRIL
     Dosage: 10 MILLIGRAM
  2. DILTIAZEM. [Suspect]
     Active Substance: DILTIAZEM
     Indication: PRINZMETAL ANGINA
     Dosage: 1 DOSAGE FORM, MODIFIED?RELEASE CAPSULE, 200 MG (MILLIGRAM)
     Dates: start: 2021, end: 20210402

REACTIONS (1)
  - Diabetes mellitus [Recovered/Resolved]

NARRATIVE: CASE EVENT DATE: 20210113
